FAERS Safety Report 21871813 (Version 2)
Quarter: 2023Q1

REPORT INFORMATION
  Report Type: Report from Study
  Country: US (occurrence: US)
  Receive Date: 20230117
  Receipt Date: 20230306
  Transmission Date: 20230418
  Serious: Yes (Other)
  Sender: FDA-Public Use
  Company Number: US-009507513-2301USA003922

PATIENT
  Sex: Male

DRUGS (1)
  1. BELSOMRA [Suspect]
     Active Substance: SUVOREXANT
     Dosage: 20 MILLIGRAM, AT BEDTIME (HS)
     Route: 048

REACTIONS (5)
  - Hip arthroplasty [Unknown]
  - Back pain [Unknown]
  - Insomnia [Unknown]
  - Product dose omission issue [Unknown]
  - Product use issue [Unknown]
